FAERS Safety Report 9167607 (Version 1)
Quarter: 2013Q1

REPORT INFORMATION
  Report Type: Spontaneous
  Country: IN (occurrence: None)
  Receive Date: 20130304
  Receipt Date: 20130304
  Transmission Date: 20140127
  Serious: Yes (Hospitalization)
  Sender: FDA-Public Use
  Company Number: MODA20130001

PATIENT
  Age: 21 Year
  Sex: Male

DRUGS (1)
  1. MODAFINIL [Suspect]
     Indication: DISTURBANCE IN ATTENTION
     Route: 048

REACTIONS (4)
  - Schizophrenia [None]
  - Delusion of reference [None]
  - Hallucinations, mixed [None]
  - Hallucination, olfactory [None]
